FAERS Safety Report 13757017 (Version 1)
Quarter: 2017Q3

REPORT INFORMATION
  Report Type: Other
  Country: GB (occurrence: FR)
  Receive Date: 20170714
  Receipt Date: 20170714
  Transmission Date: 20171127
  Serious: Yes (Life-Threatening, Other)
  Sender: FDA-Public Use
  Company Number: FR-INTERNATIONAL MEDICATION SYSTEMS, LIMITED-2023402

PATIENT
  Age: 71 Year
  Sex: Male

DRUGS (13)
  1. MIRTAZAPINE. [Concomitant]
     Active Substance: MIRTAZAPINE
  2. TAMSULOSIN HYDROCHLORIDE. [Suspect]
     Active Substance: TAMSULOSIN HYDROCHLORIDE
  3. BUDESONIDE. [Concomitant]
     Active Substance: BUDESONIDE
  4. PANTOPRAZOLE SODIUM. [Concomitant]
     Active Substance: PANTOPRAZOLE SODIUM
  5. FUROSEMIDE. [Concomitant]
     Active Substance: FUROSEMIDE
  6. ALLOPURINOL. [Concomitant]
     Active Substance: ALLOPURINOL
  7. ZOPICLONE [Concomitant]
     Active Substance: ZOPICLONE
  8. LISINOPRIL. [Suspect]
     Active Substance: LISINOPRIL
  9. FENTANYL. [Concomitant]
     Active Substance: FENTANYL
     Route: 062
  10. ROSUVASTATIN. [Concomitant]
     Active Substance: ROSUVASTATIN
  11. COLCHICINE. [Concomitant]
     Active Substance: COLCHICINE
  12. MORPHINE [Suspect]
     Active Substance: MORPHINE
     Route: 048
  13. CLOPIDOGREL [Concomitant]
     Active Substance: CLOPIDOGREL BISULFATE

REACTIONS (2)
  - Angioedema [Recovering/Resolving]
  - Drug interaction [Recovering/Resolving]
